FAERS Safety Report 4886063-8 (Version None)
Quarter: 2006Q1

REPORT INFORMATION
  Report Type: 
  Country: None (occurrence: None)
  Receive Date: 20060118
  Receipt Date: 20060118
  Transmission Date: 20060701
  Serious: Yes (Death, Hospitalization)
  Sender: FDA-Public Use
  Company Number: None

PATIENT
  Sex: Male
  Weight: 0.157 kg

DRUGS (5)
  1. CYTARABINE [Suspect]
     Indication: HAEMATOPOIETIC NEOPLASM
     Dosage: SEE IMAGE
     Route: 042
     Dates: start: 20050826
  2. DAUNORUBICIN [Suspect]
     Dosage: SEE IMAGE
     Dates: start: 20050716
  3. DAUNORUBICIN [Suspect]
     Dosage: SEE IMAGE
     Dates: start: 20050826
  4. ETOPOSIDE [Suspect]
     Dosage: SEE IMAGE
     Dates: start: 20050716
  5. ETOPOSIDE [Suspect]
     Dosage: SEE IMAGE
     Dates: start: 20050826

REACTIONS (15)
  - BODY TEMPERATURE INCREASED [None]
  - CHOLELITHIASIS [None]
  - DEPRESSED LEVEL OF CONSCIOUSNESS [None]
  - DRUG EFFECT DECREASED [None]
  - DRUG TOXICITY [None]
  - DYSPNOEA [None]
  - FEBRILE NEUTROPENIA [None]
  - GENERAL PHYSICAL HEALTH DETERIORATION [None]
  - HAEMOGLOBIN DECREASED [None]
  - HEPATITIS [None]
  - HYPOTHERMIA [None]
  - PLATELET COUNT DECREASED [None]
  - RESPIRATORY ARREST [None]
  - SEPTIC SHOCK [None]
  - SPEECH DISORDER [None]
